FAERS Safety Report 16275909 (Version 7)
Quarter: 2021Q4

REPORT INFORMATION
  Report Type: Spontaneous
  Country: US (occurrence: US)
  Receive Date: 20190506
  Receipt Date: 20211028
  Transmission Date: 20220303
  Serious: No
  Sender: FDA-Public Use
  Company Number: US-SA-2019SA118670

PATIENT
  Age: 57 Year
  Sex: Female

DRUGS (1)
  1. DUPIXENT [Suspect]
     Active Substance: DUPILUMAB
     Indication: Dermatitis atopic
     Dosage: 300 MG, QOW
     Route: 058
     Dates: start: 20190221

REACTIONS (9)
  - Pain in extremity [Unknown]
  - Nausea [Unknown]
  - Asthenia [Unknown]
  - Weight decreased [Unknown]
  - Pruritus [Unknown]
  - Injection site bruising [Unknown]
  - Eye disorder [Unknown]
  - Arthralgia [Unknown]
  - Injection site reaction [Unknown]

NARRATIVE: CASE EVENT DATE: 20190101
